FAERS Safety Report 15775916 (Version 1)
Quarter: 2018Q4

REPORT INFORMATION
  Report Type: Report from Study
  Country: DE (occurrence: DE)
  Receive Date: 20181231
  Receipt Date: 20181231
  Transmission Date: 20190205
  Serious: Yes (Hospitalization)
  Sender: FDA-Public Use
  Company Number: DE-ACCORD-098601

PATIENT
  Age: 81 Year
  Sex: Female
  Weight: 83 kg

DRUGS (5)
  1. ZOFRAN [Concomitant]
     Active Substance: ONDANSETRON HYDROCHLORIDE
     Indication: PREMEDICATION
     Dates: start: 20150903
  2. EMEND [Concomitant]
     Active Substance: APREPITANT
     Indication: PREMEDICATION
     Dates: start: 20150903
  3. 5-FU [Suspect]
     Active Substance: FLUOROURACIL
     Indication: SQUAMOUS CELL CARCINOMA OF HEAD AND NECK
     Dosage: DAILY DOSE: 4000 MG/M2 MILLIGRAM(S)/SQ. METER EVERY 3 WEEKS
     Dates: start: 20150904, end: 20150907
  4. ERBITUX [Suspect]
     Active Substance: CETUXIMAB
     Indication: SQUAMOUS CELL CARCINOMA OF HEAD AND NECK
     Route: 042
  5. CISPLATIN. [Suspect]
     Active Substance: CISPLATIN
     Indication: SQUAMOUS CELL CARCINOMA OF HEAD AND NECK
     Dosage: DAILY DOSE: 100 MG/M2 MILLIGRAM(S)/SQ. METER EVERY 3 WEEKS
     Dates: start: 20150904, end: 20150907

REACTIONS (2)
  - General physical health deterioration [Recovered/Resolved]
  - Skin reaction [Recovered/Resolved]

NARRATIVE: CASE EVENT DATE: 20150907
